FAERS Safety Report 12507889 (Version 1)
Quarter: 2016Q2

REPORT INFORMATION
  Report Type: Spontaneous
  Country: US (occurrence: None)
  Receive Date: 20160628
  Receipt Date: 20160628
  Transmission Date: 20160815
  Serious: Yes (Other)
  Sender: FDA-Public Use
  Company Number: None

PATIENT
  Age: 24 Year
  Sex: Female
  Weight: 83.01 kg

DRUGS (1)
  1. NEXPLANON [Suspect]
     Active Substance: ETONOGESTREL
     Dates: start: 20150825, end: 20160622

REACTIONS (15)
  - Suicidal ideation [None]
  - Tachycardia [None]
  - Peripheral swelling [None]
  - Weight increased [None]
  - Migraine [None]
  - Panic attack [None]
  - Alopecia [None]
  - Pain in extremity [None]
  - Nephrolithiasis [None]
  - Arthropathy [None]
  - Cerebrovascular accident [None]
  - Tachyphrenia [None]
  - Fatigue [None]
  - Dissociation [None]
  - Back disorder [None]
